FAERS Safety Report 18605183 (Version 2)
Quarter: 2021Q2

REPORT INFORMATION
  Report Type: Report from Study
  Country: US (occurrence: US)
  Receive Date: 20201211
  Receipt Date: 20210406
  Transmission Date: 20210717
  Serious: Yes (Other)
  Sender: FDA-Public Use
  Company Number: US-TEVA-2020-US-1857391

PATIENT
  Age: 18 Year
  Sex: Female

DRUGS (1)
  1. CLARAVIS [Suspect]
     Active Substance: ISOTRETINOIN
     Route: 065
     Dates: start: 20200707, end: 20200917

REACTIONS (1)
  - Hyperlipidaemia [Unknown]

NARRATIVE: CASE EVENT DATE: 20200911
